FAERS Safety Report 5857759-6 (Version None)
Quarter: 2008Q3

REPORT INFORMATION
  Report Type: 
  Country: None (occurrence: None)
  Receive Date: 20080825
  Receipt Date: 20080825
  Transmission Date: 20090109
  Serious: Yes (Other)
  Sender: FDA-Public Use
  Company Number: None

PATIENT
  Age: 24 Year
  Sex: Male
  Weight: 66.09 kg

DRUGS (1)
  1. AMBIEN CR [Suspect]
     Indication: INSOMNIA
     Dosage: 12.5 MG PRN FOR SLEEP PO
     Route: 048
     Dates: start: 20080807, end: 20080808

REACTIONS (3)
  - ANXIETY [None]
  - HALLUCINATION [None]
  - INSOMNIA [None]
